FAERS Safety Report 11269720 (Version 1)
Quarter: 2015Q3

REPORT INFORMATION
  Report Type: Spontaneous
  Country: US (occurrence: None)
  Receive Date: 20150713
  Receipt Date: 20150713
  Transmission Date: 20151125
  Serious: No
  Sender: FDA-Public Use
  Company Number: None

PATIENT
  Age: 53 Year
  Sex: Female
  Weight: 65.77 kg

DRUGS (5)
  1. DULOXETINE. [Suspect]
     Active Substance: DULOXETINE
     Indication: IRRITABILITY
     Route: 048
     Dates: start: 20150415, end: 20150711
  2. DULOXETINE. [Suspect]
     Active Substance: DULOXETINE
     Indication: FATIGUE
     Route: 048
     Dates: start: 20150415, end: 20150711
  3. DULOXETINE HCL [Concomitant]
     Active Substance: DULOXETINE HYDROCHLORIDE
  4. DULOXETINE. [Suspect]
     Active Substance: DULOXETINE
     Indication: MOOD ALTERED
     Route: 048
     Dates: start: 20150415, end: 20150711
  5. DULOXETINE. [Suspect]
     Active Substance: DULOXETINE
     Indication: ASTHENIA
     Route: 048
     Dates: start: 20150415, end: 20150711

REACTIONS (5)
  - Headache [None]
  - Asthenia [None]
  - Product substitution issue [None]
  - Irritability [None]
  - Mood altered [None]

NARRATIVE: CASE EVENT DATE: 20150710
